FAERS Safety Report 5404353-7 (Version None)
Quarter: 2007Q3

REPORT INFORMATION
  Report Type: 
  Country: None (occurrence: None)
  Receive Date: 20070802
  Receipt Date: 20070721
  Transmission Date: 20080115
  Serious: Yes (Other)
  Sender: FDA-Public Use
  Company Number: US-PFIZER INC-2007037860

PATIENT
  Sex: Female

DRUGS (4)
  1. CHANTIX [Suspect]
     Indication: EX-SMOKER
     Route: 048
     Dates: start: 20070412, end: 20070601
  2. ATIVAN [Suspect]
     Indication: ANXIETY
  3. OTHER ANTIDIARRHOEALS [Concomitant]
  4. PERCOGESIC [Concomitant]

REACTIONS (4)
  - AGITATION [None]
  - HOMICIDAL IDEATION [None]
  - NERVOUSNESS [None]
  - SOMNOLENCE [None]
